FAERS Safety Report 24151731 (Version 4)
Quarter: 2024Q4

REPORT INFORMATION
  Report Type: Spontaneous
  Country: CA (occurrence: CA)
  Receive Date: 20240730
  Receipt Date: 20241001
  Transmission Date: 20250114
  Serious: Yes (Hospitalization, Other)
  Sender: CELLTRION
  Company Number: CA-PFIZER INC-202400221555

PATIENT

DRUGS (2)
  1. INFLECTRA [Suspect]
     Active Substance: INFLIXIMAB-DYYB
     Indication: Ankylosing spondylitis
     Dosage: 300 MG, EVERY 6 WEEKS
     Route: 042
     Dates: start: 20231211
  2. INFLECTRA [Suspect]
     Active Substance: INFLIXIMAB-DYYB
     Dosage: 300 MG, EVERY 6 WEEKS
     Route: 042
     Dates: start: 20240606, end: 20240606

REACTIONS (5)
  - Colitis [Unknown]
  - Drug ineffective [Unknown]
  - Psoriasis [Unknown]
  - Nail pitting [Unknown]
  - Erythema [Unknown]

NARRATIVE: CASE EVENT DATE: 20240101
